FAERS Safety Report 13027688 (Version 1)
Quarter: 2016Q4

REPORT INFORMATION
  Report Type: Spontaneous
  Country: US (occurrence: US)
  Receive Date: 20161214
  Receipt Date: 20161214
  Transmission Date: 20170207
  Serious: No
  Sender: FDA-Public Use
  Company Number: US-DUSA PHARMACEUTICALS, INC.-1060782

PATIENT
  Age: 74 Year
  Sex: Male

DRUGS (1)
  1. LEVULAN KERASTICK [Suspect]
     Active Substance: AMINOLEVULINIC ACID HYDROCHLORIDE
     Route: 061
     Dates: start: 20140317, end: 20140527

REACTIONS (2)
  - Wrong technique in product usage process [None]
  - Post procedural complication [Unknown]

NARRATIVE: CASE EVENT DATE: 20140317
